FAERS Safety Report 4706241-8 (Version None)
Quarter: 2005Q2

REPORT INFORMATION
  Report Type: 
  Country: None (occurrence: None)
  Receive Date: 20050629
  Receipt Date: 20050415
  Transmission Date: 20051028
  Serious: No
  Sender: FDA-Public Use
  Company Number: 05P-163-0297537-00

PATIENT
  Age: 52 Year
  Sex: Female
  Weight: 100 kg

DRUGS (17)
  1. HUMIRA [Suspect]
     Indication: RHEUMATOID ARTHRITIS
     Dosage: 40 MG, 1 IN 2 WK, SUBCUTANEOUS; 40 MG, 1 IN 1 WK, SUBCUTANEOUS
     Route: 058
     Dates: start: 20040801, end: 20041101
  2. HUMIRA [Suspect]
     Indication: RHEUMATOID ARTHRITIS
     Dosage: 40 MG, 1 IN 2 WK, SUBCUTANEOUS; 40 MG, 1 IN 1 WK, SUBCUTANEOUS
     Route: 058
     Dates: start: 20041101
  3. CELECOXIB [Concomitant]
  4. OYSTER SHELL CALCIUM WITH D [Concomitant]
  5. ASPIRIN [Concomitant]
  6. ATENOLOL [Concomitant]
  7. LOTREL [Concomitant]
  8. SERETIDE MITE [Concomitant]
  9. POTASSIUM CHLORIDE [Concomitant]
  10. FUROSEMIDE [Concomitant]
  11. HYDROXYCHLOROQUINE SULFATE [Concomitant]
  12. LEFLUNOMIDE [Concomitant]
  13. PREDNISONE TAB [Concomitant]
  14. CYCLOBENZAPRINE HYDROCHLORIDE [Concomitant]
  15. MULTIVITAMIN [Concomitant]
  16. PAROXETINE HYDROCHLORIDE [Concomitant]
  17. ESOMEPRAZOLE [Concomitant]

REACTIONS (2)
  - DRUG EFFECT DECREASED [None]
  - PROCEDURAL COMPLICATION [None]
